FAERS Safety Report 10397281 (Version 1)
Quarter: 2014Q3

REPORT INFORMATION
  Report Type: Spontaneous
  Country: IT (occurrence: IT)
  Receive Date: 20140820
  Receipt Date: 20140820
  Transmission Date: 20150326
  Serious: Yes (Death, Other)
  Sender: FDA-Public Use
  Company Number: PHHY2014IT097025

PATIENT
  Age: 61 Year
  Sex: Female

DRUGS (8)
  1. CISPLATIN. [Suspect]
     Active Substance: CISPLATIN
     Indication: METASTATIC GASTRIC CANCER
     Dosage: 60 MG, UNK
  2. RADIOTHERAPY [Suspect]
     Active Substance: RADIATION THERAPY
     Indication: METASTATIC GASTRIC CANCER
     Dosage: 1.8 OT, UNK
  3. CAPECITABINE [Suspect]
     Active Substance: CAPECITABINE
     Indication: METASTATIC GASTRIC CANCER
  4. 5-FLUOROURACIL [Suspect]
     Active Substance: FLUOROURACIL
     Indication: METASTATIC GASTRIC CANCER
  5. ANTIEMETICS [Concomitant]
     Active Substance: UNSPECIFIED INGREDIENT
     Indication: VOMITING
  6. OXALIPLATIN. [Suspect]
     Active Substance: OXALIPLATIN
     Indication: METASTATIC GASTRIC CANCER
  7. ANTIEMETICS [Concomitant]
     Active Substance: UNSPECIFIED INGREDIENT
     Indication: NAUSEA
  8. FOLINIC ACID [Suspect]
     Active Substance: LEUCOVORIN
     Indication: METASTATIC GASTRIC CANCER

REACTIONS (7)
  - Metastases to liver [Fatal]
  - Metastases to peritoneum [Fatal]
  - Drug intolerance [Unknown]
  - Dysphonia [Unknown]
  - Diarrhoea [Unknown]
  - Laryngospasm [Unknown]
  - Blood creatinine increased [Unknown]
